FAERS Safety Report 5115044-4 (Version None)
Quarter: 2006Q3

REPORT INFORMATION
  Report Type: 
  Country: None (occurrence: None)
  Receive Date: 20060925
  Receipt Date: 20060925
  Transmission Date: 20061208
  Serious: Yes (Other)
  Sender: FDA-Public Use
  Company Number: None

PATIENT
  Age: 83 Year
  Sex: Female

DRUGS (5)
  1. REVLIMID [Suspect]
     Indication: MULTIPLE MYELOMA
     Dosage: 25MG   QD   PO
     Route: 048
     Dates: start: 20060822, end: 20060911
  2. WARFARIN SODIUM [Concomitant]
  3. LOVASTATIN [Concomitant]
  4. NOVOLIN [Concomitant]
  5. EPOGEN [Concomitant]

REACTIONS (1)
  - PLATELET COUNT DECREASED [None]
